FAERS Safety Report 20738214 (Version 1)
Quarter: 2022Q2

REPORT INFORMATION
  Report Type: Spontaneous
  Country: US (occurrence: None)
  Receive Date: 20220422
  Receipt Date: 20220422
  Transmission Date: 20220721
  Serious: Yes (Hospitalization, Other)
  Sender: FDA-Public Use
  Company Number: US-Unichem Pharmaceuticals (USA) Inc-UCM202204-000372

PATIENT
  Age: 37 Year
  Sex: Female

DRUGS (3)
  1. BACLOFEN [Suspect]
     Active Substance: BACLOFEN
     Indication: Overdose
     Dosage: UNKNOWN
  2. AMITRIPTYLINE [Concomitant]
     Active Substance: AMITRIPTYLINE
     Indication: Product used for unknown indication
     Dosage: UNKNOWN
  3. MODAFINIL [Concomitant]
     Active Substance: MODAFINIL
     Indication: Product used for unknown indication
     Dosage: UNKNOWN

REACTIONS (8)
  - Encephalopathy [Recovering/Resolving]
  - Bradycardia [Recovered/Resolved]
  - Coma [Recovered/Resolved]
  - Apnoea [Recovered/Resolved]
  - Toxicity to various agents [Unknown]
  - Overdose [Unknown]
  - Hypotension [Recovered/Resolved]
  - Generalised tonic-clonic seizure [Recovering/Resolving]
